FAERS Safety Report 20065893 (Version 1)
Quarter: 2021Q4

REPORT INFORMATION
  Report Type: Spontaneous
  Country: GB (occurrence: GB)
  Receive Date: 20211114
  Receipt Date: 20211114
  Transmission Date: 20220303
  Serious: Yes (Other)
  Sender: FDA-Public Use
  Company Number: None

PATIENT
  Age: 43 Year
  Sex: Female
  Weight: 41.27 kg

DRUGS (3)
  1. FENTANYL [Interacting]
     Active Substance: FENTANYL
     Route: 065
  2. OXYCODONE [Interacting]
     Active Substance: OXYCODONE
     Indication: Surgery
     Route: 051
     Dates: start: 20211029, end: 20211029
  3. OXYCODONE [Interacting]
     Active Substance: OXYCODONE
     Indication: Anaesthesia

REACTIONS (2)
  - Negative thoughts [Recovered/Resolved with Sequelae]
  - Drug interaction [Unknown]

NARRATIVE: CASE EVENT DATE: 20211029
